FAERS Safety Report 24569932 (Version 1)
Quarter: 2024Q4

REPORT INFORMATION
  Report Type: Spontaneous
  Country: US (occurrence: None)
  Receive Date: 20241031
  Receipt Date: 20241031
  Transmission Date: 20250115
  Serious: No
  Sender: Public
  Company Number: None

PATIENT
  Age: 18 Month
  Sex: Male
  Weight: 9.45 kg

DRUGS (1)
  1. NIRSEVIMAB-ALIP [Suspect]
     Active Substance: NIRSEVIMAB-ALIP
     Dosage: 1 ML ONE TIME DOSE INTRMUSCULAR?
     Route: 030

REACTIONS (1)
  - Incorrect dose administered [None]

NARRATIVE: CASE EVENT DATE: 20241011
